FAERS Safety Report 6092591-2 (Version None)
Quarter: 2009Q1

REPORT INFORMATION
  Report Type: 
  Country: None (occurrence: None)
  Receive Date: 20090225
  Receipt Date: 20080515
  Transmission Date: 20090719
  Serious: No
  Sender: FDA-Public Use
  Company Number: US-BRISTOL-MYERS SQUIBB COMPANY-14193510

PATIENT
  Age: 34 Year
  Sex: Female
  Weight: 44 kg

DRUGS (1)
  1. KENALOG [Suspect]
     Dosage: DOSAGE FORM = INJECTION

REACTIONS (5)
  - DRY MOUTH [None]
  - INJECTION SITE DISCOLOURATION [None]
  - INJECTION SITE REACTION [None]
  - MENSTRUATION IRREGULAR [None]
  - POLLAKIURIA [None]
